FAERS Safety Report 4899043-3 (Version None)
Quarter: 2006Q1

REPORT INFORMATION
  Report Type: 
  Country: None (occurrence: None)
  Receive Date: 20060202
  Receipt Date: 20050920
  Transmission Date: 20060701
  Serious: Yes (Hospitalization)
  Sender: FDA-Public Use
  Company Number: PHRM2005FR02500

PATIENT
  Age: 80 Year
  Sex: Male

DRUGS (6)
  1. PERMIXON [Suspect]
     Route: 048
     Dates: start: 20000101
  2. KARDEGIC [Suspect]
     Dosage: 75 MG, QD
     Route: 048
     Dates: start: 20040901
  3. TAHOR [Suspect]
     Dosage: 80 MG, QD
     Route: 048
     Dates: start: 20040901, end: 20041226
  4. TAHOR [Suspect]
     Dosage: 40 MG, QD
     Route: 048
     Dates: start: 20050101, end: 20050101
  5. TAHOR [Suspect]
     Dosage: 10 MG, QD
     Route: 048
     Dates: start: 20050201, end: 20050301
  6. TAREG [Suspect]
     Dosage: 80 MG, QD
     Route: 048
     Dates: start: 20020101

REACTIONS (5)
  - DYSAESTHESIA [None]
  - HYPOAESTHESIA [None]
  - MOTOR DYSFUNCTION [None]
  - NEUROPATHY PERIPHERAL [None]
  - PARAESTHESIA [None]
